FAERS Safety Report 14671842 (Version 1)
Quarter: 2018Q1

REPORT INFORMATION
  Report Type: Spontaneous
  Country: FR (occurrence: FR)
  Receive Date: 20180323
  Receipt Date: 20180323
  Transmission Date: 20180509
  Serious: Yes (Other)
  Sender: FDA-Public Use
  Company Number: FR-MERCK KGAA-2044358

PATIENT
  Sex: Female

DRUGS (2)
  1. DUPHASTON [Concomitant]
     Active Substance: DYDROGESTERONE
     Route: 048
  2. NOVOTHYROX [Suspect]
     Active Substance: LEVOTHYROXINE SODIUM
     Indication: PRODUCT USED FOR UNKNOWN INDICATION
     Route: 048
     Dates: start: 201703

REACTIONS (24)
  - Normochromic normocytic anaemia [None]
  - Mood swings [None]
  - Affect lability [None]
  - Palpitations [None]
  - Spinal column injury [None]
  - Salivary gland disorder [None]
  - Dizziness [None]
  - Fatigue [None]
  - Aggression [None]
  - Headache [None]
  - Fibromyalgia [Recovering/Resolving]
  - Asthenia [None]
  - Insomnia [None]
  - Dyspnoea [None]
  - Loss of libido [None]
  - Menorrhagia [None]
  - Stress [None]
  - Loss of personal independence in daily activities [None]
  - Personal relationship issue [None]
  - Sleep disorder [None]
  - Osteoarthritis [None]
  - Amnesia [None]
  - Weight increased [None]
  - Alopecia [None]

NARRATIVE: CASE EVENT DATE: 201704
